FAERS Safety Report 11003141 (Version 7)
Quarter: 2015Q2

REPORT INFORMATION
  Report Type: Spontaneous
  Country: US (occurrence: US)
  Receive Date: 20150409
  Receipt Date: 20150618
  Transmission Date: 20150821
  Serious: Yes (Hospitalization, Other)
  Sender: FDA-Public Use
  Company Number: US-UCBSA-2015010210

PATIENT
  Age: 32 Year
  Sex: Female
  Weight: 75 kg

DRUGS (15)
  1. DICYCLOMINE [Concomitant]
     Active Substance: DICYCLOMINE HYDROCHLORIDE
     Indication: DIARRHOEA
  2. PREDNISONE. [Concomitant]
     Active Substance: PREDNISONE
     Dosage: 15 MG FOR 5 DAYS
  3. CEFTRIAXONE. [Concomitant]
     Active Substance: CEFTRIAXONE
     Indication: PRODUCT USED FOR UNKNOWN INDICATION
     Dosage: UNK
  4. CIMZIA [Suspect]
     Active Substance: CERTOLIZUMAB PEGOL
     Indication: RHEUMATOID ARTHRITIS
     Dosage: 200 MG, EV 4 WEEKS
     Dates: start: 201502, end: 20150313
  5. PRENATAL PLUS IRON [Concomitant]
     Active Substance: .ALPHA.-TOCOPHEROL ACETATE, DL-\.BETA.-CAROTENE\ASCORBIC ACID\CALCIUM CARBONATE\CHOLECALCIFEROL\CUPRIC OXIDE\CYANOCOBALAMIN\FERROUS FUMARATE\FOLIC ACID\NIACINAMIDE\PYRIDOXINE HYDROCHLORIDE\RIBOFLAVIN\THIAMINE MONONITRATE\VITAMIN A ACETATE\ZINC OXIDE
     Indication: PRODUCT USED FOR UNKNOWN INDICATION
     Dosage: UNK
  6. TYLENOL [Concomitant]
     Active Substance: ACETAMINOPHEN
     Indication: PRODUCT USED FOR UNKNOWN INDICATION
     Dosage: UNK
  7. CIMZIA [Suspect]
     Active Substance: CERTOLIZUMAB PEGOL
     Indication: CROHN^S DISEASE
     Dosage: 400 MG, EV 2 WEEKS(QOW) FOR LOADING DOSE
     Route: 058
     Dates: start: 20150123, end: 20150220
  8. REMICADE [Concomitant]
     Active Substance: INFLIXIMAB
     Indication: PRODUCT USED FOR UNKNOWN INDICATION
     Dosage: UNK
  9. DICYCLOMINE [Concomitant]
     Active Substance: DICYCLOMINE HYDROCHLORIDE
     Indication: PAIN
     Dosage: 10 MG, 3X/DAY (TID) TAKE 15 MINUTES BEFORE MEAL
     Route: 048
  10. PREDNISONE. [Concomitant]
     Active Substance: PREDNISONE
     Indication: PRODUCT USED FOR UNKNOWN INDICATION
     Dosage: STRENGHT 5 MG: 20 MG FOR 5 DAYS
  11. PREDNISONE. [Concomitant]
     Active Substance: PREDNISONE
     Dosage: 10 MG FOR 5 DAYS
  12. MORPHINE [Suspect]
     Active Substance: MORPHINE
     Indication: PRODUCT USED FOR UNKNOWN INDICATION
     Dosage: UNK
  13. ASACOL [Concomitant]
     Active Substance: MESALAMINE
     Indication: CROHN^S DISEASE
     Dosage: UNK
  14. IMURAN [Concomitant]
     Active Substance: AZATHIOPRINE
     Indication: CROHN^S DISEASE
     Dosage: UNK
  15. FUMARATE DISODIUM [Concomitant]
     Indication: PRODUCT USED FOR UNKNOWN INDICATION
     Dosage: 28-0.8 MG, ONCE DAILY (QD)
     Route: 048

REACTIONS (33)
  - Scar [Not Recovered/Not Resolved]
  - Arthropathy [Recovering/Resolving]
  - Deep vein thrombosis [Unknown]
  - Stomatitis [Not Recovered/Not Resolved]
  - Oral herpes [Recovered/Resolved]
  - Blood potassium decreased [Not Recovered/Not Resolved]
  - Rash [Recovering/Resolving]
  - White blood cell count increased [Recovering/Resolving]
  - Cardiac disorder [Recovering/Resolving]
  - Urticaria [Not Recovered/Not Resolved]
  - Constipation [Unknown]
  - Dizziness [Unknown]
  - Dermatitis [Unknown]
  - Weight decreased [Recovering/Resolving]
  - Rash generalised [Recovered/Resolved]
  - Rectal haemorrhage [Unknown]
  - Pyrexia [Unknown]
  - Systemic inflammatory response syndrome [Unknown]
  - Decreased appetite [Unknown]
  - Fatigue [Unknown]
  - Pruritus [Unknown]
  - Diarrhoea [Recovering/Resolving]
  - Blood iron decreased [Recovering/Resolving]
  - Dysuria [Unknown]
  - Oral candidiasis [Recovering/Resolving]
  - Nausea [Unknown]
  - Genital rash [Recovering/Resolving]
  - Skin lesion [Recovered/Resolved]
  - Vaginal lesion [Not Recovered/Not Resolved]
  - Abdominal distension [Unknown]
  - Headache [Unknown]
  - Abdominal pain upper [Unknown]
  - Chills [Unknown]

NARRATIVE: CASE EVENT DATE: 2015
